FAERS Safety Report 14769052 (Version 3)
Quarter: 2018Q4

REPORT INFORMATION
  Report Type: Spontaneous
  Country: BE (occurrence: BE)
  Receive Date: 20180417
  Receipt Date: 20181108
  Transmission Date: 20190204
  Serious: Yes (Other)
  Sender: FDA-Public Use
  Company Number: BE-MYLANLABS-2018M1024898

PATIENT
  Age: 70 Year
  Sex: Female

DRUGS (4)
  1. CALCITONIN SALMON. [Suspect]
     Active Substance: CALCITONIN SALMON
     Indication: PRODUCT USED FOR UNKNOWN INDICATION
     Dosage: UTILISE AVANT LA SURVENUE DES LESIONS. ACTUELLEMENT ARRETE
  2. OXYCONTIN [Suspect]
     Active Substance: OXYCODONE HYDROCHLORIDE
     Indication: PRODUCT USED FOR UNKNOWN INDICATION
     Dosage: UTILISE AVANT LA SURVENUE DES LESIONS. ACTUELLEMENT ARRETE
  3. PARACETAMOL [Suspect]
     Active Substance: ACETAMINOPHEN
     Indication: PRODUCT USED FOR UNKNOWN INDICATION
     Dosage: UTILISE AVANT LA SURVENUE DES LESIONS. ACTUELLEMENT TOUJOURS UTILISE
  4. RIVOTRIL [Suspect]
     Active Substance: CLONAZEPAM
     Indication: PRODUCT USED FOR UNKNOWN INDICATION
     Dosage: UTILISE AVANT LA SURVENUE DES LESIONS. ACTUELLEMENT TOUJOURSUTILISE

REACTIONS (1)
  - Pemphigus [Unknown]
